FAERS Safety Report 24815677 (Version 1)
Quarter: 2025Q1

REPORT INFORMATION
  Report Type: Spontaneous
  Country: GB (occurrence: GB)
  Receive Date: 20250107
  Receipt Date: 20250107
  Transmission Date: 20250409
  Serious: Yes (Other)
  Sender: BAXTER
  Company Number: None

PATIENT

DRUGS (1)
  1. MANNITOL [Suspect]
     Active Substance: MANNITOL
     Route: 065

REACTIONS (1)
  - Eye swelling [Recovering/Resolving]
